FAERS Safety Report 5785071-2 (Version None)
Quarter: 2008Q2

REPORT INFORMATION
  Report Type: 
  Country: None (occurrence: None)
  Receive Date: 20080605
  Receipt Date: 20080421
  Transmission Date: 20081010
  Serious: No
  Sender: FDA-Public Use
  Company Number: A0723804A

PATIENT
  Age: 67 Year
  Sex: Female

DRUGS (2)
  1. ALLI [Suspect]
     Dates: start: 20080414, end: 20080417
  2. THYROID TAB [Concomitant]

REACTIONS (5)
  - ABDOMINAL DISTENSION [None]
  - FLATULENCE [None]
  - GASTROINTESTINAL SOUNDS ABNORMAL [None]
  - MALAISE [None]
  - VOMITING [None]
